FAERS Safety Report 9740844 (Version 1)
Quarter: 2013Q4

REPORT INFORMATION
  Report Type: Spontaneous
  Country: US (occurrence: US)
  Receive Date: 20131209
  Receipt Date: 20131209
  Transmission Date: 20140711
  Serious: No
  Sender: FDA-Public Use
  Company Number: US-BIOGENIDEC-2013BI099646

PATIENT
  Age: 59 Year
  Sex: Female

DRUGS (5)
  1. TECFIDERA [Suspect]
     Indication: MULTIPLE SCLEROSIS
     Route: 048
     Dates: start: 20130927, end: 20131003
  2. TECFIDERA [Suspect]
     Indication: MULTIPLE SCLEROSIS
     Route: 048
     Dates: start: 20131004
  3. AMLODIPHINE [Concomitant]
  4. VITAMIN D [Concomitant]
  5. ASPIRIN [Concomitant]

REACTIONS (1)
  - Diarrhoea [Recovered/Resolved]
